FAERS Safety Report 10621706 (Version 1)
Quarter: 2014Q4

REPORT INFORMATION
  Report Type: Spontaneous
  Country: US (occurrence: None)
  Receive Date: 20141201
  Receipt Date: 20141201
  Transmission Date: 20150529
  Serious: No
  Sender: FDA-Public Use
  Company Number: None

PATIENT
  Age: 46 Year
  Sex: Female
  Weight: 74.84 kg

DRUGS (1)
  1. TECFIDERA [Suspect]
     Active Substance: DIMETHYL FUMARATE
     Dosage: 2X A DAY TWICE DAILY TAKEN BY MOUTH
     Route: 048

REACTIONS (5)
  - Diarrhoea [None]
  - Abdominal pain lower [None]
  - Rash [None]
  - Flushing [None]
  - Dehydration [None]

NARRATIVE: CASE EVENT DATE: 20141129
